FAERS Safety Report 7374916-0 (Version None)
Quarter: 2011Q1

REPORT INFORMATION
  Report Type: 
  Country: None (occurrence: None)
  Receive Date: 20110325
  Receipt Date: 20110317
  Transmission Date: 20110831
  Serious: Yes (Hospitalization)
  Sender: FDA-Public Use
  Company Number: US-PERRIGO-11US002294

PATIENT
  Sex: Female
  Weight: 53.515 kg

DRUGS (6)
  1. METOPROLOL [Concomitant]
     Indication: BLOOD PRESSURE INCREASED
     Dosage: 25 MG, SINGLE
     Route: 065
     Dates: start: 20110315, end: 20110315
  2. LORATADINE [Suspect]
     Indication: HYPERSENSITIVITY
     Dosage: 10 MG, SINGLE
     Route: 048
     Dates: start: 20110314, end: 20110314
  3. METOPROLOL [Concomitant]
     Dosage: 12.5 MG, BID
     Route: 065
  4. FLONASE [Concomitant]
     Indication: HYPERSENSITIVITY
     Dosage: UNK, 1 SPRAY IN EACH NOSTRIL, DAILY
     Route: 045
     Dates: start: 20100101
  5. FLONASE [Concomitant]
     Indication: SINUS CONGESTION
  6. LORATADINE [Suspect]
     Indication: SINUS CONGESTION

REACTIONS (9)
  - DIZZINESS [None]
  - DYSPNOEA [None]
  - BACK PAIN [None]
  - BLOOD PRESSURE INCREASED [None]
  - HEADACHE [None]
  - CHEST PAIN [None]
  - PAIN IN EXTREMITY [None]
  - ASTHENIA [None]
  - MUSCULAR WEAKNESS [None]
